FAERS Safety Report 4438190-7 (Version None)
Quarter: 2004Q3

REPORT INFORMATION
  Report Type: 
  Country: None (occurrence: None)
  Receive Date: 20040831
  Receipt Date: 20040611
  Transmission Date: 20050211
  Serious: No
  Sender: FDA-Public Use
  Company Number: US-GLAXOSMITHKLINE-A0514312A

PATIENT
  Age: 74 Year
  Sex: Female

DRUGS (5)
  1. WELLBUTRIN XL [Suspect]
     Indication: DEPRESSION
     Dosage: 150MG PER DAY
     Route: 048
  2. TIGAN [Concomitant]
  3. COMPAZINE [Concomitant]
  4. STRATTERA [Concomitant]
  5. MULTIVITAMIN [Concomitant]

REACTIONS (4)
  - ANOREXIA [None]
  - CONSTIPATION [None]
  - NAUSEA [None]
  - WEIGHT DECREASED [None]
